FAERS Safety Report 6490047-6 (Version None)
Quarter: 2009Q4

REPORT INFORMATION
  Report Type: 
  Country: None (occurrence: None)
  Receive Date: 20091211
  Receipt Date: 20091112
  Transmission Date: 20100525
  Serious: Yes (Hospitalization, Other)
  Sender: FDA-Public Use
  Company Number: PHHO2009US11870

PATIENT
  Sex: Female
  Weight: 79 kg

DRUGS (1)
  1. CERTICAN [Suspect]
     Indication: RENAL TRANSPLANT
     Dosage: UNK
     Route: 048
     Dates: start: 20050509

REACTIONS (4)
  - ABDOMINAL ADHESIONS [None]
  - COLECTOMY [None]
  - LAPAROSCOPIC SURGERY [None]
  - SCAR [None]
